FAERS Safety Report 15596008 (Version 1)
Quarter: 2018Q4

REPORT INFORMATION
  Report Type: Spontaneous
  Country: US (occurrence: US)
  Receive Date: 20181108
  Receipt Date: 20181108
  Transmission Date: 20190205
  Serious: No
  Sender: FDA-Public Use
  Company Number: US-ASTRAZENECA-2018SF32515

PATIENT
  Age: 42 Month
  Sex: Male

DRUGS (1)
  1. PULMICORT RESPULES [Suspect]
     Active Substance: BUDESONIDE
     Indication: COUGH
     Route: 055
     Dates: start: 2018

REACTIONS (8)
  - Oral discomfort [Recovering/Resolving]
  - Off label use [Unknown]
  - Nervousness [Unknown]
  - Expired product administered [Recovered/Resolved]
  - Insomnia [Unknown]
  - Product use issue [Unknown]
  - Dysphonia [Unknown]
  - Drug ineffective [Unknown]

NARRATIVE: CASE EVENT DATE: 201802
